FAERS Safety Report 6098171-7 (Version None)
Quarter: 2009Q1

REPORT INFORMATION
  Report Type: 
  Country: None (occurrence: None)
  Receive Date: 20090227
  Receipt Date: 20090220
  Transmission Date: 20090719
  Serious: Yes (Other)
  Sender: FDA-Public Use
  Company Number: PHHY2009BR03632

PATIENT
  Age: 64 Year
  Sex: Female

DRUGS (2)
  1. TEGRETOL [Suspect]
     Indication: MENTAL DISORDER
     Dosage: UNK
     Route: 048
  2. TEGRETOL [Suspect]
     Dosage: 40 TABLETS
     Route: 048
     Dates: start: 20090201

REACTIONS (5)
  - GASTRIC LAVAGE [None]
  - HYPERHIDROSIS [None]
  - HYPERTENSION [None]
  - INTENTIONAL OVERDOSE [None]
  - SUICIDE ATTEMPT [None]
